FAERS Safety Report 26199139 (Version 1)
Quarter: 2025Q4

REPORT INFORMATION
  Report Type: Spontaneous
  Country: GB (occurrence: GB)
  Receive Date: 20251225
  Receipt Date: 20251225
  Transmission Date: 20260118
  Serious: Yes (Hospitalization, Disabling, Other)
  Sender: DEXCEL LTD.
  Company Number: None

PATIENT
  Age: 10 Month
  Sex: Female
  Weight: 10 kg

DRUGS (2)
  1. OMEPRAZOLE [Suspect]
     Active Substance: OMEPRAZOLE
     Indication: Vomiting
     Dosage: 20MG ONCE DAILY (OD)
     Dates: start: 20251212, end: 20251215
  2. OMEPRAZOLE [Suspect]
     Active Substance: OMEPRAZOLE
     Indication: Vomiting
     Dosage: 10MG OF OMEPRAZOLE 10MG/5ML LIQUID

REACTIONS (1)
  - Hyperkalaemia [Recovering/Resolving]

NARRATIVE: CASE EVENT DATE: 20251212
